FAERS Safety Report 18306446 (Version 1)
Quarter: 2020Q3

REPORT INFORMATION
  Report Type: Spontaneous
  Country: US (occurrence: US)
  Receive Date: 20200923
  Receipt Date: 20200923
  Transmission Date: 20201103
  Serious: No
  Sender: FDA-Public Use
  Company Number: None

PATIENT
  Age: 38 Year
  Sex: Male

DRUGS (2)
  1. MICAFUNGIN (MICAFUNGIN NA 100MG/VIL INJ) [Suspect]
     Active Substance: MICAFUNGIN SODIUM
     Indication: ACUTE MYELOID LEUKAEMIA
     Route: 048
     Dates: start: 20200826, end: 20200826
  2. MICAFUNGIN (MICAFUNGIN NA 100MG/VIL INJ) [Suspect]
     Active Substance: MICAFUNGIN SODIUM
     Indication: FEBRILE NEUTROPENIA
     Route: 042
     Dates: start: 20200826, end: 20200826

REACTIONS (3)
  - Respiratory depression [None]
  - Tachycardia [None]
  - Hyperhidrosis [None]

NARRATIVE: CASE EVENT DATE: 20200826
